FAERS Safety Report 7859360-1 (Version None)
Quarter: 2011Q4

REPORT INFORMATION
  Report Type: 
  Country: None (occurrence: None)
  Receive Date: 20111027
  Receipt Date: 20111014
  Transmission Date: 20120403
  Serious: Yes (Other)
  Sender: FDA-Public Use
  Company Number: US-BAYER-2011-027280

PATIENT
  Age: 27 Year
  Sex: Female

DRUGS (5)
  1. YASMIN [Suspect]
     Indication: CONTRACEPTION
     Dosage: UNK
     Dates: start: 20020101, end: 20030101
  2. YAZ [Suspect]
     Indication: CONTRACEPTION
     Dosage: UNK
     Dates: start: 20020101, end: 20030101
  3. TYLENOL-500 [Concomitant]
     Indication: HEADACHE
     Dosage: UNK UNK, PRN
  4. MOTRIN [Concomitant]
     Indication: HEADACHE
     Dosage: UNK UNK, PRN
  5. DROSPIRENONE AND ETHINYL ESTRADIOL [Suspect]
     Indication: CONTRACEPTION
     Dosage: UNK
     Dates: start: 20020101, end: 20030101

REACTIONS (9)
  - WEIGHT INCREASED [None]
  - GENERAL PHYSICAL HEALTH DETERIORATION [None]
  - PAIN [None]
  - AMENORRHOEA [None]
  - GALLBLADDER PAIN [None]
  - INJURY [None]
  - ANXIETY [None]
  - INFERTILITY FEMALE [None]
  - EMOTIONAL DISTRESS [None]
